FAERS Safety Report 9341282 (Version 1)
Quarter: 2013Q2

REPORT INFORMATION
  Report Type: Spontaneous
  Country: US (occurrence: None)
  Receive Date: 20130610
  Receipt Date: 20130610
  Transmission Date: 20140414
  Serious: Yes (Other)
  Sender: FDA-Public Use
  Company Number: None

PATIENT
  Age: 78 Year
  Sex: Female
  Weight: 53.52 kg

DRUGS (2)
  1. METOPROLOL TARTRATE [Suspect]
     Indication: SUPRAVENTRICULAR TACHYCARDIA
     Dosage: 1/2
     Route: 048
  2. METOPROLOL TARTRATE [Suspect]
     Indication: MIGRAINE
     Dosage: 1/2
     Route: 048

REACTIONS (2)
  - Dyspepsia [None]
  - Product substitution issue [None]
